FAERS Safety Report 5473343-0 (Version None)
Quarter: 2007Q4

REPORT INFORMATION
  Report Type: 
  Country: None (occurrence: None)
  Receive Date: 20071001
  Receipt Date: 20070924
  Transmission Date: 20080405
  Serious: Yes (Other)
  Sender: FDA-Public Use
  Company Number: US-JNJFOC-20070905145

PATIENT
  Age: 37 Year
  Sex: Male
  Weight: 83.92 kg

DRUGS (3)
  1. LEVAQUIN [Suspect]
     Indication: POSTOPERATIVE FEVER
     Route: 048
  2. CELEBREX [Concomitant]
     Indication: PAIN
     Route: 048
  3. LYRICA [Concomitant]
     Indication: PAIN
     Route: 048

REACTIONS (5)
  - CONFUSIONAL STATE [None]
  - MALAISE [None]
  - NAUSEA [None]
  - SENSORY DISTURBANCE [None]
  - STOMACH DISCOMFORT [None]
